FAERS Safety Report 8983831 (Version 2)
Quarter: 2013Q1

REPORT INFORMATION
  Report Type: Report from Study
  Country: US (occurrence: US)
  Receive Date: 20121224
  Receipt Date: 20130218
  Transmission Date: 20140127
  Serious: Yes (Death)
  Sender: FDA-Public Use
  Company Number: US-ROCHE-1171250

PATIENT
  Sex: Female
  Weight: 68.1 kg

DRUGS (6)
  1. BONIVA [Suspect]
     Indication: OSTEOPENIA
     Route: 048
     Dates: start: 20121216
  2. LIPITOR [Concomitant]
  3. BYSTOLIC [Concomitant]
  4. LEVOTHYROXINE [Concomitant]
  5. PAXIL [Concomitant]
  6. WARFARIN [Concomitant]

REACTIONS (2)
  - Aortic valve disease [Fatal]
  - Cardiac valve replacement complication [Fatal]
